FAERS Safety Report 9988037 (Version 4)
Quarter: 2014Q2

REPORT INFORMATION
  Report Type: Spontaneous
  Country: CA (occurrence: CA)
  Receive Date: 20140307
  Receipt Date: 20140620
  Transmission Date: 20141212
  Serious: Yes (Other)
  Sender: FDA-Public Use
  Company Number: CA-GILEAD-2013-0089389

PATIENT
  Age: 52 Year
  Sex: Male
  Weight: 84 kg

DRUGS (10)
  1. AMBRISENTAN [Suspect]
     Indication: PULMONARY ARTERIAL HYPERTENSION
     Dosage: 5 MG, BID
     Route: 048
     Dates: start: 20131121, end: 20140603
  2. AMBRISENTAN [Suspect]
     Indication: HEART DISEASE CONGENITAL
  3. LASIX                              /00032601/ [Suspect]
     Indication: OEDEMA PERIPHERAL
     Dosage: 20 MG, QD
     Route: 048
     Dates: start: 20140118, end: 20140228
  4. ATENOLOL [Concomitant]
     Indication: CARDIAC DISORDER
     Dosage: 200 MG, QD
     Route: 048
  5. PANTOPRAZOLE [Concomitant]
     Indication: GASTROOESOPHAGEAL REFLUX DISEASE
     Dosage: 40 MG, QD
     Route: 048
  6. TEGRETOL [Concomitant]
     Indication: EPILEPSY
     Dosage: 300 MG, BID
     Route: 048
  7. ALLOPURINOL [Concomitant]
     Dosage: 200 MG, QD
     Route: 048
  8. CITALOPRAM [Concomitant]
     Dosage: 20 MG, QD
     Route: 048
  9. PRADAXA [Concomitant]
     Dosage: 110 MG, UNK
     Route: 048
  10. TRACLEER                           /01587701/ [Concomitant]

REACTIONS (7)
  - Renal failure [Unknown]
  - Blood creatinine increased [Not Recovered/Not Resolved]
  - Malaise [Unknown]
  - Nasal congestion [Not Recovered/Not Resolved]
  - Rash pruritic [Not Recovered/Not Resolved]
  - Oedema peripheral [Recovering/Resolving]
  - Oedema [Unknown]
